FAERS Safety Report 9217114 (Version 1)
Quarter: 2013Q2

REPORT INFORMATION
  Report Type: Spontaneous
  Country: US (occurrence: None)
  Receive Date: 20130404
  Receipt Date: 20130404
  Transmission Date: 20140414
  Serious: Yes (Other)
  Sender: FDA-Public Use
  Company Number: USA/USA/13/0028821

PATIENT
  Age: 10 Year
  Sex: Male
  Weight: 28 kg

DRUGS (4)
  1. TACROLIMUS [Suspect]
     Indication: IMMUNOSUPPRESSION
     Dosage: 0.04 MG/KG, 1 D, UNK
  2. METHYLPREDNISOLONE [Suspect]
     Indication: IMMUNOSUPPRESSION
     Dosage: 1 MG/KG, 1 D, UNK
  3. ATG [Suspect]
     Indication: IMMUNOSUPPRESSION
  4. AZATHIOPRINE [Suspect]
     Indication: IMMUNOSUPPRESSION
     Dosage: 100 MG, 1 D, UNK

REACTIONS (7)
  - Posterior reversible encephalopathy syndrome [None]
  - Cerebral haemorrhage [None]
  - Subarachnoid haemorrhage [None]
  - Hypotension [None]
  - Somnolence [None]
  - Transaminases increased [None]
  - Partial seizures [None]
